FAERS Safety Report 12831695 (Version 3)
Quarter: 2016Q4

REPORT INFORMATION
  Report Type: Spontaneous
  Country: US (occurrence: US)
  Receive Date: 20161010
  Receipt Date: 20161209
  Transmission Date: 20170207
  Serious: Yes (Other)
  Sender: FDA-Public Use
  Company Number: US-TEVA-693964USA

PATIENT
  Sex: Female

DRUGS (2)
  1. PRENATAL [Concomitant]
     Active Substance: VITAMINS
  2. PLAN B ONE-STEP [Suspect]
     Active Substance: LEVONORGESTREL
     Indication: CONTRACEPTION
     Dates: start: 20160902

REACTIONS (3)
  - Drug ineffective [Unknown]
  - Pregnancy on oral contraceptive [Unknown]
  - Exposure during pregnancy [Unknown]

NARRATIVE: CASE EVENT DATE: 2016
